FAERS Safety Report 4433579-4 (Version None)
Quarter: 2004Q3

REPORT INFORMATION
  Report Type: 
  Country: None (occurrence: None)
  Receive Date: 20040824
  Receipt Date: 20040810
  Transmission Date: 20050211
  Serious: No
  Sender: FDA-Public Use
  Company Number: 04H-163-0270831-00

PATIENT
  Age: 24 Year
  Sex: Male

DRUGS (8)
  1. HEPARIN SODIUM [Suspect]
     Indication: EMBOLISM
  2. ACETYLSALICYLIC ACID [Suspect]
     Indication: THROMBOLYSIS
  3. ACTIVASE [Suspect]
     Indication: THROMBOLYSIS
  4. OXYGEN [Concomitant]
  5. POSITIVE PRESSURE VENITILATION [Concomitant]
  6. SUPPLEMENTAL OXYGEN [Concomitant]
  7. DIURETICS [Concomitant]
  8. NITROGLYCERIN [Concomitant]

REACTIONS (7)
  - CONJUNCTIVAL HAEMORRHAGE [None]
  - HAEMOGLOBIN DECREASED [None]
  - PULMONARY EMBOLISM [None]
  - PULMONARY HAEMORRHAGE [None]
  - PULMONARY OEDEMA [None]
  - VENIPUNCTURE SITE REACTION [None]
  - WOUND SECRETION [None]
